FAERS Safety Report 10944949 (Version 1)
Quarter: 2015Q1

REPORT INFORMATION
  Report Type: Spontaneous
  Country: US (occurrence: None)
  Receive Date: 20150319
  Receipt Date: 20150319
  Transmission Date: 20150721
  Serious: Yes (Other)
  Sender: FDA-Public Use
  Company Number: 201502016

PATIENT
  Age: 71 Year
  Sex: Male

DRUGS (2)
  1. TESTIM [Suspect]
     Active Substance: TESTOSTERONE
     Indication: BLOOD TESTOSTERONE DECREASED
     Route: 062
     Dates: start: 2013
  2. INSULIN (INSULIN) [Concomitant]
     Active Substance: INSULIN NOS

REACTIONS (2)
  - Coronary artery occlusion [None]
  - Dyspnoea [None]

NARRATIVE: CASE EVENT DATE: 201405
